FAERS Safety Report 4614928-0 (Version None)
Quarter: 2005Q1

REPORT INFORMATION
  Report Type: 
  Country: None (occurrence: None)
  Receive Date: 20050322
  Receipt Date: 20050126
  Transmission Date: 20050727
  Serious: Yes (Hospitalization)
  Sender: FDA-Public Use
  Company Number: DE-MERCK-0501DEU00259

PATIENT
  Age: 65 Year
  Sex: Male
  Weight: 69 kg

DRUGS (4)
  1. VIOXX [Suspect]
     Indication: RIB FRACTURE
     Route: 048
     Dates: start: 20040209, end: 20040213
  2. VIOXX [Suspect]
     Route: 048
     Dates: start: 20040214, end: 20040224
  3. CANDESARTAN CILEXETIL AND HYDROCHLOROTHIAZIDE [Concomitant]
     Indication: HYPERTENSION
     Route: 048
     Dates: start: 20030212
  4. POPULUS AND SERENOA REPENS AND URTICA [Concomitant]
     Indication: PROSTATIC ADENOMA
     Route: 048
     Dates: start: 20000509

REACTIONS (1)
  - PHLEBOTHROMBOSIS [None]
